FAERS Safety Report 14160591 (Version 2)
Quarter: 2017Q4

REPORT INFORMATION
  Report Type: Report from Study
  Country: US (occurrence: US)
  Receive Date: 20171106
  Receipt Date: 20171114
  Transmission Date: 20180321
  Serious: Yes (Hospitalization, Other)
  Sender: FDA-Public Use
  Company Number: PHEH2017US035663

PATIENT
  Sex: Female

DRUGS (3)
  1. TOBI [Suspect]
     Active Substance: TOBRAMYCIN
     Indication: BRONCHITIS BACTERIAL
     Dosage: 1 DF (300 MG/5 ML), BID
     Route: 055
  2. TOBI [Suspect]
     Active Substance: TOBRAMYCIN
     Indication: BRONCHITIS
  3. TOBI [Suspect]
     Active Substance: TOBRAMYCIN
     Indication: ASTHMA

REACTIONS (3)
  - Malaise [Not Recovered/Not Resolved]
  - Pseudomonas infection [Not Recovered/Not Resolved]
  - Expired product administered [Unknown]
